FAERS Safety Report 13051663 (Version 3)
Quarter: 2017Q1

REPORT INFORMATION
  Report Type: Report from Study
  Country: CA (occurrence: CA)
  Receive Date: 20161221
  Receipt Date: 20170106
  Transmission Date: 20170428
  Serious: Yes (Hospitalization)
  Sender: FDA-Public Use
  Company Number: CA-BIOGEN-2016BI00333018

PATIENT
  Age: 27 Year
  Sex: Female

DRUGS (1)
  1. TECFIDERA [Suspect]
     Active Substance: DIMETHYL FUMARATE
     Indication: MULTIPLE SCLEROSIS
     Dosage: MAINTENANCE DOSE
     Route: 048
     Dates: start: 20160929

REACTIONS (9)
  - Dizziness [Recovered/Resolved]
  - Gastritis viral [Recovered/Resolved]
  - Balance disorder [Recovered/Resolved]
  - Flushing [Recovered/Resolved]
  - Fall [Recovered/Resolved]
  - Vertigo [Recovered/Resolved]
  - Nuclear magnetic resonance imaging abnormal [Recovered/Resolved]
  - Visual impairment [Recovered/Resolved]
  - Vomiting [Recovered/Resolved]

NARRATIVE: CASE EVENT DATE: 20160929
